FAERS Safety Report 6302847-3 (Version None)
Quarter: 2009Q3

REPORT INFORMATION
  Report Type: 
  Country: None (occurrence: None)
  Receive Date: 20090810
  Receipt Date: 20080811
  Transmission Date: 20100115
  Serious: No
  Sender: FDA-Public Use
  Company Number: US-TYCO HEALTHCARE/MALLINCKRODT-T200801279

PATIENT

DRUGS (8)
  1. MORPHINE [Suspect]
     Indication: BACK PAIN
     Dosage: 1 TAB Q12 HR
     Route: 048
     Dates: start: 20080810, end: 20080811
  2. MORPHINE [Suspect]
     Indication: SPINAL FRACTURE
  3. DARVOCET                           /00220901/ [Concomitant]
     Indication: PAIN
  4. FLEXERIL [Concomitant]
     Indication: MUSCLE RELAXANT THERAPY
     Dosage: 10 MG, TID
  5. CORTEF                             /00028601/ [Concomitant]
     Indication: FATIGUE
  6. CORTEF                             /00028601/ [Concomitant]
     Indication: ADRENAL DISORDER
  7. THYROID TAB [Concomitant]
     Indication: HYPOTHYROIDISM
  8. MORPHINE SULFATE [Concomitant]
     Indication: PAIN
     Dosage: UNK, UNK
     Dates: start: 20080724, end: 20080809

REACTIONS (4)
  - ABDOMINAL DISTENSION [None]
  - FATIGUE [None]
  - HYPERSENSITIVITY [None]
  - PERSONALITY DISORDER [None]
